FAERS Safety Report 14287761 (Version 1)
Quarter: 2017Q4

REPORT INFORMATION
  Report Type: Report from Study
  Country: None (occurrence: NZ)
  Receive Date: 20171215
  Receipt Date: 20171215
  Transmission Date: 20180321
  Serious: Yes (Hospitalization)
  Sender: FDA-Public Use
  Company Number: NZ-ABBVIE-17K-118-2192322-00

PATIENT
  Age: 24 Year
  Sex: Male

DRUGS (2)
  1. HUMIRA [Suspect]
     Active Substance: ADALIMUMAB
     Indication: CROHN^S DISEASE
     Route: 058
     Dates: start: 20170823, end: 201709
  2. HUMIRA [Suspect]
     Active Substance: ADALIMUMAB
     Dosage: LOADING DOSE OF 4 INJECTIONS
     Route: 058
     Dates: start: 201711, end: 201711

REACTIONS (2)
  - Intestinal perforation [Recovering/Resolving]
  - Drug effect delayed [Unknown]

NARRATIVE: CASE EVENT DATE: 20171008
